FAERS Safety Report 19902022 (Version 1)
Quarter: 2021Q3

REPORT INFORMATION
  Report Type: Spontaneous
  Country: GB (occurrence: GB)
  Receive Date: 20210930
  Receipt Date: 20210930
  Transmission Date: 20211014
  Serious: Yes (Hospitalization)
  Sender: FDA-Public Use
  Company Number: GB-PFIZER INC-9612882

PATIENT
  Age: 73 Year
  Sex: Female

DRUGS (4)
  1. THIORIDAZINE [Concomitant]
     Active Substance: THIORIDAZINE
     Indication: ANXIETY
     Dosage: 75 MG, DAILY
  2. SERTRALINE HCL [Suspect]
     Active Substance: SERTRALINE HYDROCHLORIDE
     Dosage: 50 MG, DAILY
  3. ATENOLOL. [Concomitant]
     Active Substance: ATENOLOL
     Indication: HYPERTENSION
     Dosage: 100 MG, DAILY, (MORE THAN TWO YEARS)
  4. BENDROFLUAZIDE [Concomitant]
     Active Substance: BENDROFLUMETHIAZIDE
     Indication: HYPERTENSION
     Dosage: 2.5 MG, DAILY, (MORE THAN TWO YEARS)

REACTIONS (2)
  - Agranulocytosis [Recovered/Resolved]
  - Septic shock [Recovered/Resolved]
